FAERS Safety Report 4816381-0 (Version None)
Quarter: 2005Q4

REPORT INFORMATION
  Report Type: 
  Country: None (occurrence: None)
  Receive Date: 20051028
  Receipt Date: 20051019
  Transmission Date: 20060501
  Serious: Yes (Other)
  Sender: FDA-Public Use
  Company Number: 2005144445

PATIENT
  Sex: 0

DRUGS (1)
  1. FRAGMIN [Suspect]
     Indication: HAEMODIALYSIS

REACTIONS (3)
  - HAEMODIALYSIS [None]
  - PROCEDURAL COMPLICATION [None]
  - SHOCK [None]
